FAERS Safety Report 18889817 (Version 1)
Quarter: 2021Q1

REPORT INFORMATION
  Report Type: Spontaneous
  Country: GB (occurrence: GB)
  Receive Date: 20210213
  Receipt Date: 20210213
  Transmission Date: 20210420
  Serious: Yes (Other)
  Sender: FDA-Public Use
  Company Number: NVSC2021GB031843

PATIENT
  Age: 77 Year
  Sex: Female
  Weight: 53 kg

DRUGS (1)
  1. OMEPRAZOLE. [Suspect]
     Active Substance: OMEPRAZOLE
     Indication: ILL-DEFINED DISORDER
     Dosage: UNK, 10 MG PUT UP TO 20 MG
     Route: 048
     Dates: start: 20201108, end: 20201129

REACTIONS (2)
  - Gastritis [Recovered/Resolved]
  - Rash [Not Recovered/Not Resolved]

NARRATIVE: CASE EVENT DATE: 20201204
